FAERS Safety Report 20315903 (Version 1)
Quarter: 2022Q1

REPORT INFORMATION
  Report Type: Spontaneous
  Country: US (occurrence: None)
  Receive Date: 20220110
  Receipt Date: 20220110
  Transmission Date: 20220423
  Serious: No
  Sender: FDA-Public Use
  Company Number: US-ROCHE-2923949

PATIENT
  Age: 51 Year
  Sex: Male

DRUGS (4)
  1. RITUXAN [Suspect]
     Active Substance: RITUXIMAB
     Indication: Multiple sclerosis
     Dosage: SDV 500MG/50ML
     Route: 042
     Dates: start: 20210927
  2. BACLOFEN [Concomitant]
     Active Substance: BACLOFEN
     Dates: start: 20210521, end: 20210927
  3. ROPINIROLE [Concomitant]
     Active Substance: ROPINIROLE
     Dates: start: 20210222
  4. TADALAFIL [Concomitant]
     Active Substance: TADALAFIL
     Dates: start: 20210212, end: 20210927

REACTIONS (2)
  - Off label use [Unknown]
  - No adverse event [Unknown]

NARRATIVE: CASE EVENT DATE: 20210927
